FAERS Safety Report 22605680 (Version 4)
Quarter: 2024Q1

REPORT INFORMATION
  Report Type: Spontaneous
  Country: US (occurrence: US)
  Receive Date: 20230615
  Receipt Date: 20240131
  Transmission Date: 20240409
  Serious: No
  Sender: FDA-Public Use
  Company Number: US-PFIZER INC-PV202300103604

PATIENT
  Age: 61 Year
  Sex: Female

DRUGS (1)
  1. XELJANZ XR [Suspect]
     Active Substance: TOFACITINIB CITRATE
     Dosage: 11 MG
     Dates: end: 202312

REACTIONS (5)
  - Headache [Recovered/Resolved]
  - Abdominal pain upper [Unknown]
  - Abdominal discomfort [Unknown]
  - White blood cell count increased [Unknown]
  - White blood cell count decreased [Unknown]
